FAERS Safety Report 25077380 (Version 1)
Quarter: 2025Q1

REPORT INFORMATION
  Report Type: Spontaneous
  Country: US (occurrence: US)
  Receive Date: 20250314
  Receipt Date: 20250314
  Transmission Date: 20250408
  Serious: No
  Sender: ABBVIE
  Company Number: US-ABBVIE-6167818

PATIENT
  Age: 59 Year
  Sex: Male

DRUGS (1)
  1. HUMIRA [Suspect]
     Active Substance: ADALIMUMAB
     Indication: Colitis ulcerative
     Route: 058

REACTIONS (6)
  - Immunodeficiency [Unknown]
  - Influenza like illness [Unknown]
  - Cough [Unknown]
  - Ear discomfort [Unknown]
  - Productive cough [Unknown]
  - Off label use [Unknown]
